FAERS Safety Report 10446721 (Version 1)
Quarter: 2014Q3

REPORT INFORMATION
  Report Type: Spontaneous
  Country: US (occurrence: None)
  Receive Date: 20140910
  Receipt Date: 20140910
  Transmission Date: 20150326
  Serious: No
  Sender: FDA-Public Use
  Company Number: None

PATIENT
  Age: 39 Year
  Sex: Male
  Weight: 81.65 kg

DRUGS (1)
  1. OXYCODONE/ACETAMINOPHEN [Suspect]
     Active Substance: ACETAMINOPHEN\OXYCODONE\OXYCODONE HYDROCHLORIDE
     Indication: PAIN
     Dosage: 1 TABLET AS NEEDED TAKEN BY MOUTH
     Route: 048
     Dates: start: 20140903, end: 20140907

REACTIONS (3)
  - Product substitution issue [None]
  - Inadequate analgesia [None]
  - Headache [None]

NARRATIVE: CASE EVENT DATE: 20140903
